FAERS Safety Report 20697352 (Version 1)
Quarter: 2022Q2

REPORT INFORMATION
  Report Type: Spontaneous
  Country: US (occurrence: None)
  Receive Date: 20220408
  Receipt Date: 20220408
  Transmission Date: 20220720
  Serious: Yes (Hospitalization)
  Sender: FDA-Public Use
  Company Number: None

PATIENT
  Age: 46 Year
  Sex: Female
  Weight: 68.95 kg

DRUGS (14)
  1. CAPECITABINE [Suspect]
     Active Substance: CAPECITABINE
     Dosage: FREQUENCY : TWICE A DAY;?
     Route: 048
  2. CAPECITABINE [Suspect]
     Active Substance: CAPECITABINE
     Dosage: FREQUENCY : TWICE A DAY;?
     Route: 048
  3. BUSPIRONE [Concomitant]
     Active Substance: BUSPIRONE HYDROCHLORIDE
  4. CLONAZEPAM [Concomitant]
     Active Substance: CLONAZEPAM
  5. DICLOFENAC SODIUM [Concomitant]
  6. FENTANYL TRANSDERMAL SYSTEM [Concomitant]
     Active Substance: FENTANYL
  7. GABAPENTIN [Concomitant]
     Active Substance: GABAPENTIN
  8. HYDROCHLOROTHIAZIDE [Concomitant]
  9. HYDROXYZINE [Concomitant]
     Active Substance: HYDROXYZINE HYDROCHLORIDE
  10. OXYCODONE-ACETAMINOPHEN [Concomitant]
  11. PAROXETINE HCL [Concomitant]
  12. PEPCID [Concomitant]
     Active Substance: FAMOTIDINE
  13. REQUIP [Concomitant]
     Active Substance: ROPINIROLE HYDROCHLORIDE
  14. ZOFRAN [Concomitant]
     Active Substance: ONDANSETRON HYDROCHLORIDE

REACTIONS (4)
  - Urinary tract infection [None]
  - Seizure [None]
  - Brain oedema [None]
  - Therapy interrupted [None]
